FAERS Safety Report 9257304 (Version 1)
Quarter: 2013Q2

REPORT INFORMATION
  Report Type: Spontaneous
  Country: PL (occurrence: PL)
  Receive Date: 20130426
  Receipt Date: 20130426
  Transmission Date: 20140414
  Serious: Yes (Death)
  Sender: FDA-Public Use
  Company Number: PHHY2013PL040977

PATIENT
  Sex: 0

DRUGS (1)
  1. EXELON PATCH [Suspect]
     Dosage: 9.5 MG, UNK
     Route: 062

REACTIONS (1)
  - Death [Fatal]
